FAERS Safety Report 12158064 (Version 1)
Quarter: 2016Q1

REPORT INFORMATION
  Report Type: Spontaneous
  Country: US (occurrence: US)
  Receive Date: 20160308
  Receipt Date: 20160308
  Transmission Date: 20160526
  Serious: No
  Sender: FDA-Public Use
  Company Number: US-JNJFOC-20150113289

PATIENT
  Age: 59 Year
  Sex: Male

DRUGS (14)
  1. SINEMET [Concomitant]
     Active Substance: CARBIDOPA\LEVODOPA
     Route: 048
  2. IMBRUVICA [Suspect]
     Active Substance: IBRUTINIB
     Indication: CHRONIC LYMPHOCYTIC LEUKAEMIA
     Route: 048
     Dates: start: 20140829
  3. VITAMIN B12 [Concomitant]
     Active Substance: CYANOCOBALAMIN
     Route: 048
  4. GLUCOTROL [Concomitant]
     Active Substance: GLIPIZIDE
  5. TENORMIN [Concomitant]
     Active Substance: ATENOLOL
     Route: 048
  6. CANNABIS [Concomitant]
     Active Substance: CANNABIS SATIVA SUBSP. INDICA TOP
     Route: 055
     Dates: start: 20141106
  7. DICLOXACILLIN [Concomitant]
     Active Substance: DICLOXACILLIN
     Dates: start: 20140819
  8. COLACE [Concomitant]
     Active Substance: DOCUSATE SODIUM
     Route: 048
  9. ZOCOR [Concomitant]
     Active Substance: SIMVASTATIN
     Route: 048
  10. FLOMAX [Concomitant]
     Active Substance: TAMSULOSIN HYDROCHLORIDE
     Route: 048
  11. TYLENOL WITH CODEINE [Concomitant]
     Active Substance: ACETAMINOPHEN\CODEINE PHOSPHATE
     Route: 048
     Dates: start: 20141229
  12. ASPIRIN. [Concomitant]
     Active Substance: ASPIRIN
     Route: 048
  13. ZESTRIL [Concomitant]
     Active Substance: LISINOPRIL
  14. KAYEXALATE [Concomitant]
     Active Substance: SODIUM POLYSTYRENE SULFONATE
     Dates: start: 20140909, end: 20140911

REACTIONS (7)
  - Early satiety [Unknown]
  - Occult blood positive [Unknown]
  - Disease progression [Unknown]
  - Abdominal pain upper [Not Recovered/Not Resolved]
  - Coordination abnormal [Unknown]
  - Gait disturbance [Unknown]
  - Constipation [Unknown]

NARRATIVE: CASE EVENT DATE: 20141230
